FAERS Safety Report 5237082-3 (Version None)
Quarter: 2007Q1

REPORT INFORMATION
  Report Type: 
  Country: None (occurrence: None)
  Receive Date: 20061208
  Receipt Date: 20050303
  Transmission Date: 20070707
  Serious: Yes (Other)
  Sender: FDA-Public Use
  Company Number: 2005UW03438

PATIENT
  Age: 68 Year
  Sex: Male
  Weight: 74.842 kg

DRUGS (3)
  1. CRESTOR [Suspect]
     Indication: BLOOD CHOLESTEROL INCREASED
     Dates: start: 20040101
  2. AVAPRO [Concomitant]
  3. VITAMINS [Concomitant]

REACTIONS (1)
  - HEPATIC STEATOSIS [None]
